FAERS Safety Report 6757125-5 (Version None)
Quarter: 2010Q2

REPORT INFORMATION
  Report Type: 
  Country: None (occurrence: None)
  Receive Date: 20100604
  Receipt Date: 20100528
  Transmission Date: 20101027
  Serious: Yes (Hospitalization)
  Sender: FDA-Public Use
  Company Number: DE-AMGEN-QUU413128

PATIENT
  Sex: Male
  Weight: 90 kg

DRUGS (4)
  1. VECTIBIX [Suspect]
     Indication: COLORECTAL CANCER
     Route: 042
     Dates: start: 20091008, end: 20100401
  2. ALLOPURINOL [Concomitant]
     Route: 048
  3. DIPYRONE TAB [Concomitant]
     Route: 048
     Dates: start: 20100204
  4. OMEPRAZOLE [Concomitant]
     Route: 048

REACTIONS (2)
  - ASCITES [None]
  - VOMITING [None]
